FAERS Safety Report 24070383 (Version 1)
Quarter: 2024Q3

REPORT INFORMATION
  Report Type: Spontaneous
  Country: US (occurrence: None)
  Receive Date: 20240709
  Receipt Date: 20240709
  Transmission Date: 20241017
  Serious: Yes (Other)
  Sender: Public
  Company Number: None

PATIENT
  Age: 78 Year
  Sex: Female
  Weight: 53.55 kg

DRUGS (15)
  1. BETADINE [Suspect]
     Active Substance: POVIDONE-IODINE
     Indication: Infection prophylaxis
     Dosage: AS NEEDED
     Route: 047
  2. adrenaline and predinsone loan iv on 2 occasions [Concomitant]
  3. stinging insect injections [Concomitant]
  4. MODAFINIL [Concomitant]
     Active Substance: MODAFINIL
  5. DILTIAZEM [Concomitant]
     Active Substance: DILTIAZEM
  6. DOCONEXENT [Concomitant]
     Active Substance: DOCONEXENT
  7. upnourish areds 2 [Concomitant]
  8. tumeric [Concomitant]
  9. CYANOCOBALAMIN\DEXPANTHENOL\NIACINAMIDE\PYRIDOXINE HYDROCHLORIDE\RIBOF [Concomitant]
     Active Substance: CYANOCOBALAMIN\DEXPANTHENOL\NIACINAMIDE\PYRIDOXINE HYDROCHLORIDE\RIBOFLAVIN 5^-PHOSPHATE SODIUM\THIA
  10. prebiotics [Concomitant]
  11. hyyaluronic acid [Concomitant]
  12. DIMETHYL SULFONE [Concomitant]
     Active Substance: DIMETHYL SULFONE
  13. BIOTIN [Concomitant]
     Active Substance: BIOTIN
  14. COENZYME Q10 [Concomitant]
     Active Substance: DIETARY SUPPLEMENT\UBIDECARENONE
  15. JWH-018 [Concomitant]
     Active Substance: JWH-018

REACTIONS (1)
  - Burning sensation [None]

NARRATIVE: CASE EVENT DATE: 20240315
